FAERS Safety Report 8758887 (Version 2)
Quarter: 2013Q2

REPORT INFORMATION
  Report Type: Report from Study
  Country: JP (occurrence: JP)
  Receive Date: 20120829
  Receipt Date: 20130506
  Transmission Date: 20140414
  Serious: Yes (Other)
  Sender: FDA-Public Use
  Company Number: PHHY2012JP073718

PATIENT
  Age: 56 Year
  Sex: Male

DRUGS (21)
  1. CERTICAN [Suspect]
     Indication: HEART TRANSPLANT
     Dosage: UNK UKN, UNK
     Route: 048
     Dates: start: 20090501
  2. CERTICAN [Suspect]
     Dosage: 1.5 MG, DAILY
     Route: 048
     Dates: start: 20091125, end: 20100119
  3. CERTICAN [Suspect]
     Dosage: 1 MG, DAILY
     Route: 048
     Dates: start: 20100119, end: 20100120
  4. CERTICAN [Suspect]
     Dosage: 1.5 MG, DAILY
     Route: 048
     Dates: start: 20100120
  5. PREDNISONE [Concomitant]
     Indication: HEART TRANSPLANT
     Dosage: 1 MG, UNK
     Route: 048
     Dates: start: 20091125, end: 20100531
  6. PROGRAF [Concomitant]
     Indication: HEART TRANSPLANT
     Dosage: 8 MG, UNK
     Route: 048
     Dates: start: 20091125
  7. PROGRAF [Concomitant]
     Dosage: 4 MG, UNK
     Route: 048
  8. PROGRAF [Concomitant]
     Dosage: 1 MG, UNK
     Route: 048
  9. PROGRAF [Concomitant]
     Dosage: 7.4 MG, UNK
     Route: 048
  10. PROGRAF [Concomitant]
     Dosage: 6.7 MG, UNK
     Route: 048
  11. PROGRAF [Concomitant]
     Dosage: 6.4 MG, UNK
     Route: 048
  12. PROGRAF [Concomitant]
     Dosage: 6.2 MG, UNK
     Route: 048
  13. PROGRAF [Concomitant]
     Dosage: 6 MG, UNK
     Route: 048
  14. DIOVAN [Concomitant]
     Dosage: 40 MG, UNK
     Route: 048
     Dates: start: 20091125
  15. MEVALOTIN [Concomitant]
     Dosage: 20 MG, UNK
     Route: 048
     Dates: start: 20091125, end: 20120523
  16. MEVALOTIN [Concomitant]
     Dosage: 10 MG, UNK
     Route: 048
  17. CRESTOR [Concomitant]
     Dosage: 2.5 MG, UNK
     Route: 048
     Dates: start: 20120524
  18. MAINTATE [Concomitant]
     Dosage: 5 MG, UNK
     Route: 048
     Dates: start: 20091125
  19. HERBESSER [Concomitant]
     Route: 048
     Dates: start: 201106
  20. OTHER ANTIDIARRHOEALS [Concomitant]
     Dates: start: 20100118, end: 20100120
  21. FLUID/ELECTROLYTE REPLACEMENT THERAPY [Concomitant]
     Dates: start: 20100118, end: 20100120

REACTIONS (3)
  - Asthma [Recovering/Resolving]
  - Diarrhoea [Recovered/Resolved]
  - Immunosuppressant drug level increased [Unknown]
